FAERS Safety Report 7338233-7 (Version None)
Quarter: 2011Q1

REPORT INFORMATION
  Report Type: 
  Country: None (occurrence: None)
  Receive Date: 20110308
  Receipt Date: 20110223
  Transmission Date: 20110831
  Serious: Yes (Hospitalization)
  Sender: FDA-Public Use
  Company Number: PHHY2011TR15678

PATIENT
  Age: 59 Year
  Sex: Female

DRUGS (3)
  1. OXALIPLATIN [Suspect]
     Dosage: UNK
  2. FLUOROURACIL [Suspect]
     Dosage: UNK
  3. FOLINIC ACID [Suspect]
     Dosage: UNK

REACTIONS (3)
  - THROMBOCYTOPENIA [None]
  - SKIN HAEMORRHAGE [None]
  - SKIN LESION [None]
